FAERS Safety Report 9632963 (Version 1)
Quarter: 2013Q4

REPORT INFORMATION
  Report Type: Spontaneous
  Country: SE (occurrence: SE)
  Receive Date: 20131018
  Receipt Date: 20131018
  Transmission Date: 20140711
  Serious: Yes (Other)
  Sender: FDA-Public Use
  Company Number: SE-BRISTOL-MYERS SQUIBB COMPANY-19554567

PATIENT
  Age: 50 Year
  Sex: Male

DRUGS (1)
  1. BYDUREON [Suspect]
     Indication: DIABETES MELLITUS
     Dates: start: 20120916, end: 20130301

REACTIONS (3)
  - Pancreatic carcinoma [Unknown]
  - Nausea [Unknown]
  - Ocular icterus [Unknown]
